FAERS Safety Report 7615718-7 (Version None)
Quarter: 2011Q3

REPORT INFORMATION
  Report Type: 
  Country: None (occurrence: None)
  Receive Date: 20110711
  Receipt Date: 20110629
  Transmission Date: 20111222
  Serious: Yes (Hospitalization, Other)
  Sender: FDA-Public Use
  Company Number: 2011AC000041

PATIENT
  Age: 60 Year
  Sex: Male

DRUGS (14)
  1. COREG [Concomitant]
  2. ATORVASTATIN [Concomitant]
  3. LISINOPRIL [Concomitant]
  4. METOPROLOL TARTRATE [Concomitant]
  5. HEPARIN [Concomitant]
  6. PLAVIX [Concomitant]
  7. FUROSEMIDE [Concomitant]
  8. ALDACTONE [Concomitant]
  9. NITROGLYCERIN [Concomitant]
  10. INTEGRILIN [Concomitant]
  11. ASPIRIN [Concomitant]
  12. DIGOXIN [Suspect]
     Indication: MYOCARDIAL ISCHAEMIA
     Dosage: 0.125 MG;QD;PO
     Route: 048
     Dates: start: 20041201, end: 20090201
  13. DIGOXIN [Suspect]
     Dosage: PO
     Route: 048
     Dates: start: 20000101
  14. PERCOCET [Concomitant]

REACTIONS (27)
  - NAUSEA [None]
  - DILATATION VENTRICULAR [None]
  - HYPERCHOLESTEROLAEMIA [None]
  - EMOTIONAL DISORDER [None]
  - OXYGEN SATURATION DECREASED [None]
  - CARDIAC FAILURE CONGESTIVE [None]
  - CARDIOACTIVE DRUG LEVEL DECREASED [None]
  - ASPARTATE AMINOTRANSFERASE INCREASED [None]
  - ANXIETY [None]
  - CREPITATIONS [None]
  - ATRIOVENTRICULAR BLOCK FIRST DEGREE [None]
  - VENTRICULAR EXTRASYSTOLES [None]
  - CONGESTIVE CARDIOMYOPATHY [None]
  - BLOOD PRESSURE INCREASED [None]
  - LEFT VENTRICULAR DYSFUNCTION [None]
  - SUPRAVENTRICULAR EXTRASYSTOLES [None]
  - MYOCARDIAL ISCHAEMIA [None]
  - CORONARY ARTERY DISEASE [None]
  - BUNDLE BRANCH BLOCK LEFT [None]
  - MYOCARDIAL INFARCTION [None]
  - MENTAL DISORDER [None]
  - ARRHYTHMIA [None]
  - CONFUSIONAL STATE [None]
  - VOMITING [None]
  - HYPERTENSION [None]
  - DYSPNOEA [None]
  - LEFT ATRIAL DILATATION [None]
